FAERS Safety Report 7197582-6 (Version None)
Quarter: 2010Q4

REPORT INFORMATION
  Report Type: 
  Country: None (occurrence: None)
  Receive Date: 20101227
  Receipt Date: 20101221
  Transmission Date: 20110411
  Serious: Yes (Hospitalization)
  Sender: FDA-Public Use
  Company Number: FR-SANOFI-AVENTIS-2010SA077029

PATIENT
  Age: 49 Year
  Sex: Male

DRUGS (14)
  1. TAXOTERE [Suspect]
     Indication: LUNG ADENOCARCINOMA
     Dates: start: 20101119, end: 20101119
  2. TAXOTERE [Suspect]
     Dates: start: 20101109, end: 20101109
  3. CARBOPLATIN [Suspect]
     Indication: LUNG ADENOCARCINOMA
     Dates: start: 20101019, end: 20101019
  4. CARBOPLATIN [Suspect]
     Dates: start: 20101109, end: 20101109
  5. GRANOCYTE [Concomitant]
     Route: 058
     Dates: start: 20101024
  6. ESOMEPRAZOLE [Concomitant]
     Route: 048
  7. DOLIPRANE [Concomitant]
  8. STILNOX [Concomitant]
     Route: 048
  9. PHOSPHALUGEL [Concomitant]
  10. LEXOMIL [Concomitant]
  11. CORTANCYL [Concomitant]
     Route: 048
  12. TAVANIC [Concomitant]
  13. HYDROCORTISONE [Concomitant]
  14. FLUDROCORTISONE [Concomitant]

REACTIONS (2)
  - DIARRHOEA [None]
  - HYPOKALAEMIA [None]
